FAERS Safety Report 17103310 (Version 2)
Quarter: 2020Q1

REPORT INFORMATION
  Report Type: Report from Study
  Country: US (occurrence: US)
  Receive Date: 20191203
  Receipt Date: 20200102
  Transmission Date: 20200409
  Serious: Yes (Hospitalization)
  Sender: FDA-Public Use
  Company Number: US-ROCHE-2480073

PATIENT
  Age: 49 Year
  Sex: Female

DRUGS (3)
  1. HERCEPTIN [Suspect]
     Active Substance: TRASTUZUMAB
     Route: 065
  2. HERCEPTIN [Suspect]
     Active Substance: TRASTUZUMAB
     Indication: BREAST CANCER FEMALE
     Dosage: DATE OF DOSE RECEIVED: 02/JUL/2019, 23/JUL/2019, 13/AUG/2019, 05/SEP/2019, 24/SEP/2019, 15/OCT/2019
     Route: 065
     Dates: start: 20190611
  3. PERJETA [Suspect]
     Active Substance: PERTUZUMAB
     Indication: BREAST CANCER FEMALE
     Dosage: DATE OF DOSE RECEIVED: 02/JUL/2019, 23/JUL/2019, 13/AUG/2019, 05/SEP/2019, 24/SEP/2019, 15/OCT/2019
     Route: 065
     Dates: start: 20190611

REACTIONS (2)
  - Pericardial effusion [Recovering/Resolving]
  - Pain [Not Recovered/Not Resolved]

NARRATIVE: CASE EVENT DATE: 20191116
